FAERS Safety Report 7393571-7 (Version None)
Quarter: 2011Q1

REPORT INFORMATION
  Report Type: 
  Country: None (occurrence: None)
  Receive Date: 20110331
  Receipt Date: 20110331
  Transmission Date: 20110831
  Serious: Yes (Other)
  Sender: FDA-Public Use
  Company Number: None

PATIENT
  Age: 73 Year
  Sex: Female
  Weight: 57.6068 kg

DRUGS (1)
  1. SUCRALFATE [Suspect]
     Indication: INFLAMMATION
     Dosage: 1 GM TABS 3X DAILY 1 HR PRIOR TO MEALS
     Dates: start: 20110218

REACTIONS (2)
  - DIZZINESS [None]
  - CONSTIPATION [None]
